FAERS Safety Report 7484967-3 (Version None)
Quarter: 2011Q2

REPORT INFORMATION
  Report Type: 
  Country: None (occurrence: None)
  Receive Date: 20110517
  Receipt Date: 20101004
  Transmission Date: 20111010
  Serious: Yes (Hospitalization)
  Sender: FDA-Public Use
  Company Number: US-BAYER-201011631NA

PATIENT
  Age: 19 Year
  Sex: Female
  Weight: 90 kg

DRUGS (6)
  1. YAZ [Suspect]
     Dosage: UNK
     Dates: start: 20080212, end: 20080922
  2. YAZ [Suspect]
     Dosage: UNK
     Dates: start: 20081201
  3. YAZ [Suspect]
     Indication: CONTRACEPTION
     Route: 048
     Dates: start: 20071001, end: 20090915
  4. YAZ [Suspect]
     Dosage: UNK
     Dates: start: 20090415, end: 20090827
  5. DONNATAL [Concomitant]
     Indication: PAIN
     Dosage: 4 TIMES DAILY
     Route: 048
     Dates: end: 20080613
  6. MOTRIN [Concomitant]
     Indication: CHEST PAIN
     Dosage: 600 MG
     Dates: start: 20080326

REACTIONS (10)
  - GALLBLADDER CHOLESTEROLOSIS [None]
  - ABDOMINAL PAIN UPPER [None]
  - CHOLELITHIASIS [None]
  - CHOLECYSTITIS ACUTE [None]
  - BILE DUCT STONE [None]
  - CHEST PAIN [None]
  - DYSPNOEA [None]
  - NAUSEA [None]
  - BACK PAIN [None]
  - VOMITING [None]
